FAERS Safety Report 9399830 (Version 1)
Quarter: 2013Q3

REPORT INFORMATION
  Report Type: Spontaneous
  Country: BE (occurrence: BE)
  Receive Date: 20130715
  Receipt Date: 20130715
  Transmission Date: 20140515
  Serious: No
  Sender: FDA-Public Use
  Company Number: BE-JNJFOC-20130700417

PATIENT
  Age: 79 Year
  Sex: Male
  Weight: 62 kg

DRUGS (5)
  1. DUROGESIC [Suspect]
     Indication: PRODUCT USED FOR UNKNOWN INDICATION
     Dosage: ONE 12.5 UG/HR + HALF 12.5 UG/HR PATCH FOR 3 WEEKS
     Route: 062
  2. URFADYN [Suspect]
     Indication: URINARY TRACT DISORDER
     Route: 048
     Dates: start: 201304
  3. DAFALGAN [Suspect]
     Indication: PAIN
     Route: 048
     Dates: start: 201303
  4. VOLTAREN [Suspect]
     Indication: PAIN
     Route: 048
     Dates: start: 201306
  5. VALSARTAN [Concomitant]
     Indication: HYPERTENSION
     Route: 048
     Dates: start: 2002

REACTIONS (4)
  - Somnolence [Not Recovered/Not Resolved]
  - Confusional state [Not Recovered/Not Resolved]
  - Wrong technique in drug usage process [Unknown]
  - Drug administration error [Unknown]
